FAERS Safety Report 8876739 (Version 1)
Quarter: 2012Q4

REPORT INFORMATION
  Report Type: 
  Country: US (occurrence: US)
  Receive Date: 20121029
  Receipt Date: 20121029
  Transmission Date: 20130627
  Serious: No
  Sender: FDA-Public Use
  Company Number: US-PFIZER INC-2012268371

PATIENT
  Age: 94 Year

DRUGS (1)
  1. GABAPENTIN [Suspect]
     Dosage: 300 mg, UNK

REACTIONS (2)
  - Somnolence [Unknown]
  - Confusional state [Unknown]
